FAERS Safety Report 6818426-5 (Version None)
Quarter: 2010Q3

REPORT INFORMATION
  Report Type: 
  Country: None (occurrence: None)
  Receive Date: 20100706
  Receipt Date: 20080201
  Transmission Date: 20110219
  Serious: No
  Sender: FDA-Public Use
  Company Number: US-PFIZER INC-2007094702

PATIENT
  Sex: Female
  Weight: 67.7 kg

DRUGS (5)
  1. ZITHROMAX [Suspect]
     Indication: PHARYNGITIS
     Dates: start: 20071106
  2. ZYRTEC [Concomitant]
     Indication: HYPERSENSITIVITY
  3. MONTELUKAST SODIUM [Concomitant]
     Indication: HYPERSENSITIVITY
  4. ALEVE (CAPLET) [Concomitant]
  5. NOVOLOG [Concomitant]
     Indication: DIABETES MELLITUS

REACTIONS (4)
  - EAR DISCOMFORT [None]
  - HEARING IMPAIRED [None]
  - HYPOACUSIS [None]
  - TINNITUS [None]
